FAERS Safety Report 8052222-9 (Version None)
Quarter: 2012Q1

REPORT INFORMATION
  Report Type: 
  Country: None (occurrence: None)
  Receive Date: 20120118
  Receipt Date: 20120109
  Transmission Date: 20120608
  Serious: Yes (Hospitalization)
  Sender: FDA-Public Use
  Company Number: US-BAYER-2010-000620

PATIENT
  Age: 38 Year
  Sex: Female
  Weight: 77 kg

DRUGS (9)
  1. YAZ [Suspect]
     Indication: PRODUCT USED FOR UNKNOWN INDICATION
  2. COMPAZINE [Concomitant]
     Dosage: 10 MG, CONT
     Route: 042
     Dates: start: 20080607, end: 20080607
  3. ESKALITH [Concomitant]
  4. LITHIUM CARBONATE [Concomitant]
     Dosage: 450 MG, BID
     Route: 048
  5. DILAUDID [Concomitant]
     Dosage: 1 MG, CONT
     Route: 042
     Dates: start: 20080607, end: 20080607
  6. FIORINAL [CODEINE PHOSPHATE,DOXYLAMINE SUCCINATE,PARACETAMOL] [Concomitant]
  7. YASMIN [Suspect]
     Indication: PREMENSTRUAL SYNDROME
     Dosage: UNK
     Dates: start: 20080301, end: 20080501
  8. CELEXA [Concomitant]
     Route: 048
  9. KLONOPIN [Concomitant]
     Dosage: 0.5 MG, UNK
     Route: 048

REACTIONS (4)
  - ANXIETY [None]
  - DEEP VEIN THROMBOSIS [None]
  - DEPRESSION [None]
  - THROMBOPHLEBITIS SEPTIC [None]
